FAERS Safety Report 25412124 (Version 1)
Quarter: 2025Q2

REPORT INFORMATION
  Report Type: Spontaneous
  Country: DK (occurrence: DK)
  Receive Date: 20250609
  Receipt Date: 20250609
  Transmission Date: 20250716
  Serious: Yes (Other)
  Sender: RANBAXY
  Company Number: DK-SUN PHARMACEUTICAL INDUSTRIES LTD-2016R1-117096

PATIENT

DRUGS (2)
  1. DONEPEZIL [Interacting]
     Active Substance: DONEPEZIL
     Indication: Product used for unknown indication
     Route: 065
  2. GABAPENTIN [Interacting]
     Active Substance: GABAPENTIN
     Indication: Product used for unknown indication
     Dosage: 800 MG, TID
     Route: 065

REACTIONS (5)
  - Ataxia [Recovering/Resolving]
  - Somnolence [Recovering/Resolving]
  - Weight decreased [Unknown]
  - Potentiating drug interaction [Unknown]
  - Therapeutic response unexpected [Unknown]
